FAERS Safety Report 6216246-6 (Version None)
Quarter: 2009Q2

REPORT INFORMATION
  Report Type: 
  Country: None (occurrence: None)
  Receive Date: 20090605
  Receipt Date: 20090526
  Transmission Date: 20091009
  Serious: Yes (Death, Hospitalization)
  Sender: FDA-Public Use
  Company Number: A0788877A

PATIENT
  Age: 61 Year
  Sex: Male
  Weight: 90.9 kg

DRUGS (6)
  1. AVANDIA [Suspect]
     Route: 048
     Dates: start: 20050719, end: 20070324
  2. GLUCOPHAGE [Concomitant]
     Dates: start: 19900101, end: 20070325
  3. METFORMIN HYDROCHLORIDE [Concomitant]
     Dates: start: 19900101, end: 20070325
  4. HUMALOG [Concomitant]
     Dates: start: 19850101, end: 20070301
  5. DIABETA [Concomitant]
     Dates: start: 19850101, end: 20070301
  6. GLUCOTROL [Concomitant]
     Dates: start: 19850101, end: 20070301

REACTIONS (1)
  - CARDIAC FAILURE [None]
